FAERS Safety Report 12382563 (Version 2)
Quarter: 2016Q2

REPORT INFORMATION
  Report Type: Spontaneous
  Country: CA (occurrence: CA)
  Receive Date: 20160518
  Receipt Date: 20160610
  Transmission Date: 20160815
  Serious: Yes (Hospitalization)
  Sender: FDA-Public Use
  Company Number: CA-PFIZER INC-2015436178

PATIENT
  Age: 52 Year
  Sex: Female

DRUGS (5)
  1. SULFASALAZINE. [Concomitant]
     Active Substance: SULFASALAZINE
     Indication: RHEUMATOID ARTHRITIS
     Dosage: UNK
  2. XELJANZ [Suspect]
     Active Substance: TOFACITINIB CITRATE
     Indication: RHEUMATOID ARTHRITIS
     Dosage: 5 MG, 2X/DAY
     Route: 048
     Dates: start: 20151203, end: 20160324
  3. METHOTREXATE SODIUM. [Suspect]
     Active Substance: METHOTREXATE SODIUM
     Indication: RHEUMATOID ARTHRITIS
     Dosage: UNK, WEEKLY
  4. METHOTREXATE SODIUM. [Suspect]
     Active Substance: METHOTREXATE SODIUM
     Dosage: ONCE EVERY 2 WEEKS
     Dates: end: 20160324
  5. HYDROXYCHLOROQUINE [Concomitant]
     Active Substance: HYDROXYCHLOROQUINE
     Indication: RHEUMATOID ARTHRITIS
     Dosage: UNK

REACTIONS (10)
  - Intentional product misuse [Unknown]
  - Abdominal rigidity [Recovering/Resolving]
  - Urinary tract infection [Unknown]
  - Weight decreased [Unknown]
  - Gastric disorder [Not Recovered/Not Resolved]
  - Hot flush [Recovered/Resolved]
  - Abdominal pain [Recovering/Resolving]
  - Impaired gastric emptying [Not Recovered/Not Resolved]
  - Oropharyngeal pain [Unknown]
  - Abdominal distension [Recovering/Resolving]

NARRATIVE: CASE EVENT DATE: 201512
